FAERS Safety Report 9593768 (Version 1)
Quarter: 2013Q4

REPORT INFORMATION
  Report Type: Report from Study
  Country: US (occurrence: US)
  Receive Date: 20131004
  Receipt Date: 20131004
  Transmission Date: 20140711
  Serious: No
  Sender: FDA-Public Use
  Company Number: US-ALEXION-A201302019

PATIENT
  Sex: Female

DRUGS (1)
  1. SOLIRIS [Suspect]
     Indication: PAROXYSMAL NOCTURNAL HAEMOGLOBINURIA
     Dosage: UNK
     Route: 042

REACTIONS (7)
  - White blood cell count abnormal [Unknown]
  - Extrasystoles [Unknown]
  - Cardiac disorder [Unknown]
  - Stress at work [Recovering/Resolving]
  - Chest pain [Unknown]
  - Palpitations [Unknown]
  - Anxiety [Unknown]
